FAERS Safety Report 10082006 (Version 1)
Quarter: 2014Q2

REPORT INFORMATION
  Report Type: Spontaneous
  Country: US (occurrence: None)
  Receive Date: 20140415
  Receipt Date: 20140415
  Transmission Date: 20141212
  Serious: Yes (Hospitalization)
  Sender: FDA-Public Use
  Company Number: None

PATIENT
  Age: 85 Year
  Sex: Male

DRUGS (2)
  1. ERTAPENEM [Suspect]
     Indication: SEPSIS
     Route: 042
     Dates: start: 20131216, end: 20131217
  2. RIFAMPIN [Suspect]
     Indication: SEPSIS
     Route: 048
     Dates: start: 20131216, end: 20140116

REACTIONS (4)
  - Pyrexia [None]
  - Hypotension [None]
  - Leukocytosis [None]
  - Clostridium difficile colitis [None]
